FAERS Safety Report 9035341 (Version 1)
Quarter: 2013Q1

REPORT INFORMATION
  Report Type: Report from Study
  Country: US (occurrence: US)
  Receive Date: 20130129
  Receipt Date: 20130129
  Transmission Date: 20140127
  Serious: No
  Sender: FDA-Public Use
  Company Number: US-ABBOTT-12P-163-0897794-00

PATIENT
  Sex: Female
  Weight: 65.83 kg

DRUGS (9)
  1. HUMIRA 40 MG/0.8 ML PEN [Suspect]
     Indication: CROHN^S DISEASE
     Dates: start: 2006
  2. HUMIRA 40 MG/0.8 ML PEN [Suspect]
     Indication: ANKYLOSING SPONDYLITIS
  3. WELBUTRIN [Concomitant]
     Indication: DEPRESSION
  4. CELEBREX [Concomitant]
     Indication: ARTHRITIS
  5. PROTONIX [Concomitant]
     Indication: PRODUCT USED FOR UNKNOWN INDICATION
  6. BOTOX [Concomitant]
     Indication: MIGRAINE
  7. AMBIEN [Concomitant]
     Indication: PRODUCT USED FOR UNKNOWN INDICATION
  8. LORAZEPAM [Concomitant]
     Indication: PRODUCT USED FOR UNKNOWN INDICATION
  9. RELAPAC [Concomitant]
     Indication: MIGRAINE

REACTIONS (6)
  - Nausea [Recovering/Resolving]
  - Candida infection [Recovering/Resolving]
  - Fungal infection [Recovering/Resolving]
  - Chest discomfort [Recovering/Resolving]
  - Feeling abnormal [Recovering/Resolving]
  - Flatulence [Recovering/Resolving]
